FAERS Safety Report 25133603 (Version 3)
Quarter: 2025Q2

REPORT INFORMATION
  Report Type: Spontaneous
  Country: FR (occurrence: FR)
  Receive Date: 20250328
  Receipt Date: 20250624
  Transmission Date: 20250717
  Serious: Yes (Hospitalization, Other)
  Sender: BAUSCH AND LOMB
  Company Number: FR-ACTAVIS-2006A-00180

PATIENT
  Age: 42 Year
  Sex: Male
  Weight: 70 kg

DRUGS (7)
  1. ZOVIRAX [Suspect]
     Active Substance: ACYCLOVIR
     Indication: Encephalitis herpes
     Dosage: OR 15 MG/KG EVERY EIGHT HOURS, OVER A PERIOD OF ONE HOUR, DILUTED IN 250 ML OF NACL SOLUTION
     Route: 042
  2. VALPROIC ACID [Suspect]
     Active Substance: VALPROIC ACID
     Indication: Seizure prophylaxis
     Dosage: 500 MG THREE TIMES A DAY, WAS ALSO STARTED ON DAY 2
     Route: 048
  3. SODIUM CHLORIDE [Concomitant]
     Active Substance: SODIUM CHLORIDE
     Indication: Medication dilution
     Route: 042
  4. CEFOTAXIME [Concomitant]
     Active Substance: CEFOTAXIME SODIUM
     Indication: Encephalitis herpes
  5. FOSFOMYCIN [Concomitant]
     Active Substance: FOSFOMYCIN
     Indication: Encephalitis herpes
  6. METRONIDAZOLE [Concomitant]
     Active Substance: METRONIDAZOLE
     Indication: Encephalitis herpes
  7. MANNITOL [Concomitant]
     Active Substance: MANNITOL
     Indication: Brain oedema

REACTIONS (2)
  - Acute kidney injury [Not Recovered/Not Resolved]
  - Confusional state [Not Recovered/Not Resolved]

NARRATIVE: CASE EVENT DATE: 20060130
